FAERS Safety Report 6192704-8 (Version None)
Quarter: 2009Q2

REPORT INFORMATION
  Report Type: 
  Country: None (occurrence: None)
  Receive Date: 20090518
  Receipt Date: 20090508
  Transmission Date: 20091009
  Serious: Yes (Other)
  Sender: FDA-Public Use
  Company Number: US-ROCHE-632513

PATIENT
  Age: 63 Year
  Sex: Female

DRUGS (4)
  1. BONIVA [Suspect]
     Indication: OSTEOPOROSIS
     Dosage: LAST DOSE RECEIVED ON 11 APRIL 2009
     Route: 065
     Dates: start: 20090211
  2. HYDROCODONE BITARTRATE [Concomitant]
     Indication: BACK PAIN
     Dosage: WHEN NEEDED
  3. CALCIUM [Concomitant]
  4. VITAMINE D [Concomitant]

REACTIONS (2)
  - HYPOTHYROIDISM [None]
  - KIDNEY INFECTION [None]
